FAERS Safety Report 6963782-0 (Version None)
Quarter: 2010Q3

REPORT INFORMATION
  Report Type: 
  Country: None (occurrence: None)
  Receive Date: 20100902
  Receipt Date: 20100825
  Transmission Date: 20110219
  Serious: Yes (Hospitalization)
  Sender: FDA-Public Use
  Company Number: US-WATSON-2010-11477

PATIENT
  Sex: Male
  Weight: 77.098 kg

DRUGS (8)
  1. FENTANYL-50 [Suspect]
     Indication: PAIN
     Dosage: 1 PATCH Q 3 DAYS
     Route: 062
     Dates: start: 20100820
  2. FENTANYL-50 [Suspect]
     Dosage: 1 PATCH Q 3 DAYS
     Route: 062
     Dates: start: 20080101, end: 20100820
  3. BUPROPION HCL [Suspect]
     Indication: DEPRESSION
     Dosage: 75 MG, DAILY
     Route: 048
     Dates: start: 20080101, end: 20100820
  4. TAMSULOSIN HCL [Suspect]
     Indication: PROPHYLAXIS
     Dosage: 0.4 MG, DAILY
     Route: 048
     Dates: start: 20090101
  5. PAXIL [Suspect]
     Indication: DEPRESSION
     Dosage: 30 MG, DAILY
     Route: 048
     Dates: start: 20080101
  6. PROTONIX [Suspect]
     Indication: GASTROOESOPHAGEAL REFLUX DISEASE
     Dosage: 40 MG, DAILY
     Route: 048
     Dates: start: 19900101
  7. KLONOPIN [Suspect]
     Indication: ANXIETY
     Dosage: 0.5 MG, DAILY, PRN
     Route: 048
     Dates: start: 20100501
  8. MOTRIN [Concomitant]
     Indication: BREAKTHROUGH PAIN
     Dosage: 800 MG, Q6 - 8HRS, PRN
     Route: 048
     Dates: start: 20100825

REACTIONS (3)
  - CONVULSION [None]
  - RESPIRATORY DEPRESSION [None]
  - UNRESPONSIVE TO STIMULI [None]
